FAERS Safety Report 5164031-9 (Version None)
Quarter: 2006Q4

REPORT INFORMATION
  Report Type: 
  Country: None (occurrence: None)
  Receive Date: 20061204
  Receipt Date: 20061201
  Transmission Date: 20070319
  Serious: Yes (Other)
  Sender: FDA-Public Use
  Company Number: TR-ROXANE LABORATORIES, INC-2006-DE-06370GD

PATIENT
  Age: 55 Year
  Sex: Female

DRUGS (1)
  1. MORPHINE [Suspect]
     Indication: POSTOPERATIVE ANALGESIA
     Route: 008

REACTIONS (8)
  - ACCIDENTAL OVERDOSE [None]
  - AGITATION [None]
  - DRUG ADMINISTRATION ERROR [None]
  - INCORRECT DOSE ADMINISTERED [None]
  - MIOSIS [None]
  - NAUSEA [None]
  - VISUAL DISTURBANCE [None]
  - VOMITING [None]
